FAERS Safety Report 14304686 (Version 1)
Quarter: 2017Q4

REPORT INFORMATION
  Report Type: Spontaneous
  Country: JP (occurrence: JP)
  Receive Date: 20171219
  Receipt Date: 20171219
  Transmission Date: 20180321
  Serious: Yes (Other)
  Sender: FDA-Public Use
  Company Number: JP-OTSUKA-JP-2012-15337

PATIENT
  Age: 86 Year
  Sex: Female

DRUGS (19)
  1. U-PAN [Concomitant]
     Active Substance: LORAZEPAM
     Dosage: 0.5 MG, QD
     Route: 048
     Dates: start: 2011, end: 20120426
  2. SENNA [Concomitant]
     Active Substance: SENNA LEAF\SENNOSIDES\SENNOSIDES A AND B
     Dosage: UNK
     Dates: start: 2011, end: 20120426
  3. BUFFERIN TABS [Concomitant]
     Dosage: 81 MG, UNK
     Dates: start: 2011, end: 20120426
  4. ABILIFY [Suspect]
     Active Substance: ARIPIPRAZOLE
     Indication: SCHIZOPHRENIA
     Dosage: 6 MG, QD
     Route: 048
     Dates: start: 20120516, end: 20120522
  5. RACOL [Concomitant]
     Active Substance: AMINO ACIDS\DEXTROSE\ELECTROLYTES NOS
     Dosage: 1 DF, QD
     Route: 048
     Dates: start: 2011, end: 20120426
  6. BUFFERIN [Concomitant]
     Active Substance: ASPIRIN
     Dosage: 81 MG, QD
     Route: 048
     Dates: start: 2011, end: 20120426
  7. LANSOPRAZOLE. [Concomitant]
     Active Substance: LANSOPRAZOLE
     Dosage: 1 DF, QD
     Route: 048
     Dates: start: 2011, end: 20120426
  8. ABILIFY [Suspect]
     Active Substance: ARIPIPRAZOLE
     Indication: SCHIZOPHRENIA
     Dosage: 12 MG, QD
     Route: 048
     Dates: start: 2011, end: 20120426
  9. FRANDOL S [Concomitant]
     Active Substance: ISOSORBIDE DINITRATE
     Dosage: 40 MG, QD
     Dates: start: 2011, end: 20120426
  10. BIO-THREE [Concomitant]
     Active Substance: HERBALS
     Dosage: 2 DF, QD
     Route: 048
     Dates: start: 2011, end: 20120426
  11. LAXOBERON [Concomitant]
     Active Substance: SODIUM PICOSULFATE
     Dosage: 2.5 MG, QD
     Route: 048
     Dates: start: 2011, end: 20120426
  12. PRAVASTATIN SODIUM. [Concomitant]
     Active Substance: PRAVASTATIN SODIUM
     Dosage: 10 MG, QD
     Route: 048
     Dates: start: 2011, end: 20120426
  13. SIGMART [Concomitant]
     Active Substance: NICORANDIL
     Dosage: 15 MG, QD
     Route: 048
     Dates: start: 2011, end: 20120426
  14. LORAZEPAM. [Concomitant]
     Active Substance: LORAZEPAM
     Dosage: TABS
     Dates: start: 2011, end: 20120426
  15. SENNOSIDE [Concomitant]
     Active Substance: SENNOSIDES
     Dosage: 2 DF, QD
     Route: 048
     Dates: start: 2011, end: 20120426
  16. CONIEL [Concomitant]
     Active Substance: BENIDIPINE HYDROCHLORIDE
     Dosage: 8 MG, QD
     Route: 048
     Dates: start: 2011, end: 20120426
  17. GASMOTIN [Concomitant]
     Active Substance: MOSAPRIDE CITRATE
     Dosage: 10 MG, QD
     Route: 048
     Dates: start: 2011, end: 20120426
  18. BLOPRESS [Concomitant]
     Active Substance: CANDESARTAN CILEXETIL
     Dosage: 2 MG, QD
     Route: 048
     Dates: start: 2011, end: 20120426
  19. PRAVASTATIN SODIUM. [Concomitant]
     Active Substance: PRAVASTATIN SODIUM
     Dosage: TABS
     Dates: start: 2011, end: 20120426

REACTIONS (3)
  - Pneumonia [Recovering/Resolving]
  - Oedema [Unknown]
  - White blood cell count decreased [Recovered/Resolved]

NARRATIVE: CASE EVENT DATE: 20120522
